FAERS Safety Report 20224216 (Version 1)
Quarter: 2021Q4

REPORT INFORMATION
  Report Type: Spontaneous
  Country: US (occurrence: US)
  Receive Date: 20211223
  Receipt Date: 20211223
  Transmission Date: 20220303
  Serious: No
  Sender: FDA-Public Use
  Company Number: US-BIOMARINAP-US-2021-140062

PATIENT
  Age: 30 Year
  Sex: Female
  Weight: 40.5 kg

DRUGS (1)
  1. VIMIZIM [Suspect]
     Active Substance: ELOSULFASE ALFA
     Indication: Mucopolysaccharidosis IV
     Dosage: 85 MILLIGRAM, QW
     Route: 042
     Dates: start: 202004

REACTIONS (6)
  - Feeling cold [Unknown]
  - Asthenia [Unknown]
  - Blood pressure increased [Unknown]
  - Pyrexia [Unknown]
  - Chest discomfort [Unknown]
  - Dyspnoea [Unknown]

NARRATIVE: CASE EVENT DATE: 20211205
